FAERS Safety Report 10483778 (Version 2)
Quarter: 2014Q4

REPORT INFORMATION
  Report Type: Spontaneous
  Country: JP (occurrence: JP)
  Receive Date: 20140930
  Receipt Date: 20141021
  Transmission Date: 20150528
  Serious: Yes (Life-Threatening)
  Sender: FDA-Public Use
  Company Number: JP-AMGEN-JPNSP2014074445

PATIENT
  Age: 58 Year
  Sex: Male
  Weight: 57.2 kg

DRUGS (12)
  1. IRINOTECAN HYDROCHLORIDE. [Concomitant]
     Active Substance: IRINOTECAN HYDROCHLORIDE
     Indication: COLON CANCER
     Dosage: 230 MG, Q2WEEKS
     Route: 041
     Dates: start: 20140904, end: 20140904
  2. 5-FU                               /00098801/ [Concomitant]
     Active Substance: FLUOROURACIL
     Dosage: 496 MG, Q2WEEKS
     Route: 040
     Dates: start: 20140904
  3. 5-FU                               /00098801/ [Concomitant]
     Active Substance: FLUOROURACIL
     Indication: METASTASES TO LIVER
     Dosage: 3750 MG, Q2WEEKS
     Route: 041
     Dates: start: 20140904, end: 20140904
  4. GRANISETRON                        /01178102/ [Concomitant]
     Active Substance: GRANISETRON
     Dosage: 1 MG, Q2WEEKS
     Route: 041
     Dates: start: 20140904
  5. VECTIBIX [Suspect]
     Active Substance: PANITUMUMAB
     Indication: COLON CANCER
     Dosage: 340 MG, Q2WEEKS
     Route: 041
     Dates: start: 20140904, end: 20140904
  6. VECTIBIX [Suspect]
     Active Substance: PANITUMUMAB
     Indication: METASTASES TO LIVER
     Dosage: 272 MG, Q2WEEKS
     Route: 041
     Dates: start: 20140918
  7. CALCIUM LEVOFOLINATE [Concomitant]
     Active Substance: LEVOLEUCOVORIN CALCIUM
     Indication: METASTASES TO LIVER
     Dosage: 248 MG, Q2WEEKS
     Route: 041
     Dates: start: 20140904
  8. IRINOTECAN HYDROCHLORIDE. [Concomitant]
     Active Substance: IRINOTECAN HYDROCHLORIDE
     Indication: METASTASES TO LIVER
     Dosage: 184 MG, Q2WEEKS
     Route: 041
     Dates: start: 20140904
  9. DECADRON                           /00016002/ [Concomitant]
     Active Substance: DEXAMETHASONE
     Dosage: 6.6 MG, Q2WEEKS
     Route: 041
     Dates: start: 20140904
  10. CALCIUM LEVOFOLINATE [Concomitant]
     Active Substance: LEVOLEUCOVORIN CALCIUM
     Indication: COLON CANCER
     Dosage: 310 MG, Q2WEEKS
     Route: 041
     Dates: start: 20140904, end: 20140904
  11. 5-FU                               /00098801/ [Concomitant]
     Active Substance: FLUOROURACIL
     Indication: COLON CANCER
     Dosage: 620 MG, Q2WEEKS
     Route: 040
     Dates: start: 20140904, end: 20140904
  12. 5-FU                               /00098801/ [Concomitant]
     Active Substance: FLUOROURACIL
     Dosage: 3000 MG, Q2WEEKS
     Route: 041
     Dates: start: 20140904

REACTIONS (1)
  - Tumour lysis syndrome [Recovered/Resolved]

NARRATIVE: CASE EVENT DATE: 20140904
